FAERS Safety Report 12779747 (Version 1)
Quarter: 2016Q3

REPORT INFORMATION
  Report Type: Spontaneous
  Country: US (occurrence: US)
  Receive Date: 20160924
  Receipt Date: 20160924
  Transmission Date: 20161109
  Serious: No
  Sender: FDA-Public Use
  Company Number: None

PATIENT
  Age: 30 Year
  Sex: Female
  Weight: 66.15 kg

DRUGS (1)
  1. METHYLPREDNISOLONE. [Suspect]
     Active Substance: METHYLPREDNISOLONE
     Indication: DERMATITIS CONTACT
     Dosage: OTHER STRENGTH:;OTHER DOSE:;OTHER FREQUENCY:DOSPAK;OTHER ROUTE:
     Route: 048
     Dates: start: 20160919, end: 20160924

REACTIONS (6)
  - Withdrawal syndrome [None]
  - Abdominal pain upper [None]
  - Tremor [None]
  - Anxiety [None]
  - Diarrhoea [None]
  - Myalgia [None]

NARRATIVE: CASE EVENT DATE: 20160923
